FAERS Safety Report 16140512 (Version 1)
Quarter: 2019Q2

REPORT INFORMATION
  Report Type: Spontaneous
  Country: US (occurrence: US)
  Receive Date: 20190401
  Receipt Date: 20190401
  Transmission Date: 20190711
  Serious: No
  Sender: FDA-Public Use
  Company Number: US-SEPTODONT-201804961

PATIENT

DRUGS (2)
  1. LIDOCAINE CARTRIDGE 2% W/EPI [Suspect]
     Active Substance: EPINEPHRINE\LIDOCAINE
     Indication: DENTAL LOCAL ANAESTHESIA
  2. LIDOCAINE CARTRIDGE 2% W/EPI [Suspect]
     Active Substance: EPINEPHRINE\LIDOCAINE
     Indication: DENTAL LOCAL ANAESTHESIA

REACTIONS (2)
  - Injection site pain [Unknown]
  - Product quality issue [Unknown]
